FAERS Safety Report 8606053-9 (Version None)
Quarter: 2012Q3

REPORT INFORMATION
  Report Type: 
  Country: None (occurrence: None)
  Receive Date: 20120820
  Receipt Date: 20120817
  Transmission Date: 20120928
  Serious: Yes (Other)
  Sender: FDA-Public Use
  Company Number: US-GLAXOSMITHKLINE-A0990012A

PATIENT
  Age: 54 Year
  Sex: Male

DRUGS (1)
  1. NICODERM CQ [Suspect]
     Indication: SMOKING CESSATION THERAPY
     Route: 062

REACTIONS (10)
  - BACK PAIN [None]
  - HALLUCINATION [None]
  - BLOOD GLUCOSE INCREASED [None]
  - INSOMNIA [None]
  - DYSPEPSIA [None]
  - DECREASED APPETITE [None]
  - GASTRITIS [None]
  - GASTROINTESTINAL PAIN [None]
  - NAUSEA [None]
  - DIABETES MELLITUS [None]
